FAERS Safety Report 26127002 (Version 1)
Quarter: 2025Q4

REPORT INFORMATION
  Report Type: Spontaneous
  Country: US (occurrence: US)
  Receive Date: 20251205
  Receipt Date: 20251205
  Transmission Date: 20260118
  Serious: No
  Sender: PRIMUS PHARMACEUTICALS
  Company Number: US-PRIMUS-2025-US-034382

PATIENT
  Age: 55 Year
  Sex: Male

DRUGS (1)
  1. IMPOYZ [Suspect]
     Active Substance: CLOBETASOL PROPIONATE
     Indication: Product used for unknown indication
     Dosage: APPLY THIN FILM TOPICALLY 1-2 TIMES DAILY TO AFFECTED AREAS ON TRUNK AND EXTREMITIES AS NEEDED
     Route: 061
     Dates: start: 20250411

REACTIONS (3)
  - Drug ineffective [Unknown]
  - Application site pain [Unknown]
  - Product administered at inappropriate site [Unknown]

NARRATIVE: CASE EVENT DATE: 20250411
